FAERS Safety Report 12940574 (Version 8)
Quarter: 2017Q4

REPORT INFORMATION
  Report Type: Report from Study
  Country: US (occurrence: US)
  Receive Date: 20161114
  Receipt Date: 20171006
  Transmission Date: 20180320
  Serious: Yes (Hospitalization, Other)
  Sender: FDA-Public Use
  Company Number: US-ACTELION-A-US2016-140663

PATIENT
  Age: 48 Year
  Sex: Female
  Weight: 90.7 kg

DRUGS (38)
  1. LACTULOSE. [Concomitant]
     Active Substance: LACTULOSE
     Dosage: 45 ML, TID
     Route: 048
  2. DOXYCYCLINE. [Concomitant]
     Active Substance: DOXYCYCLINE
     Dosage: 100 MG, BID
     Route: 048
  3. FLUOXETINE [Concomitant]
     Active Substance: FLUOXETINE HYDROCHLORIDE
     Dosage: 20 MG, TID
     Route: 048
  4. DEMADEX [Concomitant]
     Active Substance: TORSEMIDE
     Dosage: 20 MG, TID
     Route: 048
  5. TRAZODONE [Concomitant]
     Active Substance: TRAZODONE HYDROCHLORIDE
  6. VELETRI [Suspect]
     Active Substance: EPOPROSTENOL
     Dosage: 9 NG/KG, PER MIN
     Route: 042
     Dates: start: 201705
  7. SPIRONOLACTONE. [Concomitant]
     Active Substance: SPIRONOLACTONE
     Dosage: 50 MG, QD
     Route: 048
  8. AZITHROMYCIN ANHYDROUS. [Concomitant]
     Active Substance: AZITHROMYCIN ANHYDROUS
     Dosage: 250 MG, UNK
     Route: 048
  9. ADCIRCA [Concomitant]
     Active Substance: TADALAFIL
     Dosage: 20 MG, 2 TABLETS QPM
     Route: 048
  10. TORSEMIDE. [Concomitant]
     Active Substance: TORSEMIDE
     Dosage: 20 MG, BID
  11. ALPRAZOLAM. [Concomitant]
     Active Substance: ALPRAZOLAM
     Dosage: 0.25 MG, PRN
     Route: 048
  12. K-DUR [Concomitant]
     Active Substance: POTASSIUM CHLORIDE
     Dosage: 20 MEQ, QD
     Route: 048
  13. VELETRI [Suspect]
     Active Substance: EPOPROSTENOL
     Indication: PULMONARY ARTERIAL HYPERTENSION
     Dosage: 16 NG/KG, PER MIN
     Route: 042
     Dates: start: 201107, end: 201611
  14. LETAIRIS [Suspect]
     Active Substance: AMBRISENTAN
     Indication: PRODUCT USED FOR UNKNOWN INDICATION
     Dosage: 10 MG, QD
     Route: 065
     Dates: start: 201104
  15. OLANZAPINE. [Concomitant]
     Active Substance: OLANZAPINE
     Dosage: 5 MG, UNK
  16. LACTAID [Concomitant]
     Active Substance: LACTASE
     Dosage: 3000 U, TID
     Route: 048
  17. COUMADIN [Concomitant]
     Active Substance: WARFARIN SODIUM
  18. TORSEMIDE. [Concomitant]
     Active Substance: TORSEMIDE
     Dosage: 60 MG, QD
  19. CHOLECALCIFEROL [Concomitant]
     Active Substance: CHOLECALCIFEROL
     Dosage: 50000 U, Q1WEEK
     Route: 048
  20. FLUTICASONE. [Concomitant]
     Active Substance: FLUTICASONE
     Dosage: 50 MCG, 1 SPRAY NASALLY QD PRN
     Route: 045
  21. WARFARIN [Concomitant]
     Active Substance: WARFARIN
     Dosage: 5 MG, QPM
  22. LOPERAMIDE [Concomitant]
     Active Substance: LOPERAMIDE
     Dosage: 2 MG, TID
  23. ROCEPHIN [Concomitant]
     Active Substance: CEFTRIAXONE SODIUM
     Dosage: 1 UNK, QD
     Route: 042
  24. PROTONIX [Concomitant]
     Active Substance: PANTOPRAZOLE SODIUM
     Dosage: 40 MG, BID
     Route: 048
  25. VELETRI [Suspect]
     Active Substance: EPOPROSTENOL
     Dosage: 16.5 NG/KG, PER MIN
     Route: 042
  26. UPTRAVI [Suspect]
     Active Substance: SELEXIPAG
     Indication: PULMONARY ARTERIAL HYPERTENSION
     Dosage: 1400 MCG, BID
     Route: 048
     Dates: start: 201701, end: 201705
  27. HYDROMORPHONE [Concomitant]
     Active Substance: HYDROMORPHONE
     Dosage: 2 MG, BID Q4HRS PRN
     Route: 048
  28. LACTOBACILLUS ACIDOPHILUS [Concomitant]
     Active Substance: LACTOBACILLUS ACIDOPHILUS
     Dosage: 1 UNK, QD
     Route: 048
  29. MARINOL (ALLOPURINOL) [Concomitant]
     Active Substance: ALLOPURINOL
     Dosage: 5 MG, BID
     Route: 048
  30. BENTYL [Concomitant]
     Active Substance: DICYCLOMINE HYDROCHLORIDE
     Dosage: 10 MG, QID
     Route: 048
  31. ADCIRCA [Concomitant]
     Active Substance: TADALAFIL
     Dosage: 40 MG, UNK
  32. MAGNESIUM OXIDE. [Concomitant]
     Active Substance: MAGNESIUM OXIDE
     Dosage: 400 MG, QD
     Route: 048
  33. ZOFRAN [Concomitant]
     Active Substance: ONDANSETRON HYDROCHLORIDE
     Dosage: 4 MG, Q6HRS
     Route: 048
  34. DIGOXIN. [Concomitant]
     Active Substance: DIGOXIN
     Dosage: 125 MCG, QD
     Route: 048
  35. FERROUS SULFATE. [Concomitant]
     Active Substance: FERROUS SULFATE
     Dosage: 325 MG, UNK
     Route: 048
  36. SIMETHICONE (DIMETHICONE) [Concomitant]
     Active Substance: DIMETHICONE
     Dosage: 80 MG, QID
     Route: 048
  37. VELETRI [Suspect]
     Active Substance: EPOPROSTENOL
     Dosage: 14.5 NG/KG, PER MIN
     Route: 042
     Dates: start: 20110714
  38. VELETRI [Suspect]
     Active Substance: EPOPROSTENOL
     Dosage: 8 NG/KG, PER MIN
     Route: 042

REACTIONS (33)
  - Portopulmonary hypertension [Unknown]
  - Pulmonary arterial hypertension [Unknown]
  - Dyspnoea [Unknown]
  - Melaena [Unknown]
  - Vomiting [Unknown]
  - Portal hypertensive gastropathy [Unknown]
  - Atrial fibrillation [Unknown]
  - Heart valve incompetence [Unknown]
  - Non-alcoholic steatohepatitis [Unknown]
  - Oedema [Unknown]
  - Disease progression [Unknown]
  - Ventricular failure [Unknown]
  - Chest discomfort [Unknown]
  - Balloon atrial septostomy [Unknown]
  - Large intestinal polypectomy [Unknown]
  - Probiotic therapy [Unknown]
  - Frequent bowel movements [Unknown]
  - Biopsy liver [Unknown]
  - Dizziness [Unknown]
  - Cardiac failure high output [Unknown]
  - Fluid overload [Unknown]
  - Hepatic cirrhosis [Unknown]
  - Gastrointestinal bacterial overgrowth [Unknown]
  - Pulmonary hypertension [Unknown]
  - Therapy non-responder [Unknown]
  - Gastrooesophageal reflux disease [Unknown]
  - Duodenitis [Unknown]
  - Portal hypertension [Unknown]
  - Chest pain [Recovered/Resolved]
  - Road traffic accident [Unknown]
  - Abdominal distension [Unknown]
  - Liver disorder [Unknown]
  - Dieulafoy^s vascular malformation [Unknown]

NARRATIVE: CASE EVENT DATE: 20131231
